FAERS Safety Report 6766061-X (Version None)
Quarter: 2010Q2

REPORT INFORMATION
  Report Type: 
  Country: None (occurrence: None)
  Receive Date: 20100611
  Receipt Date: 20100602
  Transmission Date: 20101027
  Serious: Yes (Hospitalization)
  Sender: FDA-Public Use
  Company Number: B0658391A

PATIENT
  Sex: Female

DRUGS (11)
  1. ZOVIRAX [Suspect]
     Indication: MENINGOENCEPHALITIS HERPETIC
     Route: 042
     Dates: start: 20100426
  2. NITRODERM [Concomitant]
     Dosage: 5MG PER DAY
     Route: 062
     Dates: end: 20100430
  3. PREVISCAN [Concomitant]
     Route: 048
     Dates: end: 20100430
  4. VASTAREL [Concomitant]
     Route: 048
     Dates: end: 20100430
  5. AERIUS [Concomitant]
     Dosage: 1UNIT PER DAY
     Route: 048
     Dates: end: 20100430
  6. COTAREG [Concomitant]
     Dosage: 1TAB PER DAY
     Route: 048
     Dates: end: 20100430
  7. HEMIGOXINE [Concomitant]
     Route: 065
     Dates: end: 20100430
  8. KREDEX [Concomitant]
     Route: 065
  9. NEXIUM [Concomitant]
     Route: 065
  10. DAFALGAN [Concomitant]
     Route: 065
  11. MONURIL [Concomitant]
     Route: 065
     Dates: end: 20100430

REACTIONS (6)
  - AGITATION [None]
  - CONFUSIONAL STATE [None]
  - DEHYDRATION [None]
  - DISORIENTATION [None]
  - HALLUCINATION [None]
  - RENAL FAILURE ACUTE [None]
